FAERS Safety Report 23467066 (Version 1)
Quarter: 2024Q1

REPORT INFORMATION
  Report Type: Spontaneous
  Country: NL (occurrence: NL)
  Receive Date: 20240201
  Receipt Date: 20240201
  Transmission Date: 20240410
  Serious: Yes (Hospitalization, Other)
  Sender: FDA-Public Use
  Company Number: NL-TEVA-VS-3138928

PATIENT
  Age: 77 Year
  Sex: Male

DRUGS (5)
  1. RITUXIMAB [Suspect]
     Active Substance: RITUXIMAB
     Route: 058
  2. FILGRASTIM [Suspect]
     Active Substance: FILGRASTIM
     Dosage: UNK
  3. VINCRISTINE [Suspect]
     Active Substance: VINCRISTINE
     Dosage: UNK
  4. PREDNISONE [Suspect]
     Active Substance: PREDNISONE
     Dosage: UNK
  5. DOXORUBICIN [Suspect]
     Active Substance: DOXORUBICIN
     Dosage: UNK

REACTIONS (2)
  - Febrile neutropenia [Recovered/Resolved]
  - Atrial fibrillation [Recovered/Resolved]
